FAERS Safety Report 4558934-3 (Version None)
Quarter: 2005Q1

REPORT INFORMATION
  Report Type: 
  Country: None (occurrence: None)
  Receive Date: 20050121
  Receipt Date: 20050113
  Transmission Date: 20050727
  Serious: Yes (Life-Threatening, Hospitalization)
  Sender: FDA-Public Use
  Company Number: US-MERCK-0501USA01500

PATIENT
  Age: 57 Year
  Sex: Male

DRUGS (4)
  1. VIOXX [Suspect]
     Indication: ARTHRITIS
     Route: 048
     Dates: start: 20031101, end: 20040930
  2. PLAVIX [Concomitant]
     Route: 065
  3. [THERAPY UNSPECIFIED] [Concomitant]
     Route: 065
  4. LIPITOR [Concomitant]
     Route: 065

REACTIONS (1)
  - MYOCARDIAL INFARCTION [None]
